FAERS Safety Report 22031200 (Version 1)
Quarter: 2023Q1

REPORT INFORMATION
  Report Type: Spontaneous
  Country: US (occurrence: US)
  Receive Date: 20230223
  Receipt Date: 20230223
  Transmission Date: 20230417
  Serious: No
  Sender: FDA-Public Use
  Company Number: US-BAUSCHBL-2023BNL001441

PATIENT
  Sex: Female

DRUGS (1)
  1. TOBRAMYCIN [Suspect]
     Active Substance: TOBRAMYCIN
     Indication: Product used for unknown indication
     Dosage: FOR 10 DAYS
     Route: 047
     Dates: start: 20230217

REACTIONS (1)
  - Instillation site irritation [Unknown]

NARRATIVE: CASE EVENT DATE: 20230201
